FAERS Safety Report 10041584 (Version 1)
Quarter: 2014Q1

REPORT INFORMATION
  Report Type: Spontaneous
  Country: NL (occurrence: None)
  Receive Date: 20140325
  Receipt Date: 20140325
  Transmission Date: 20141002
  Serious: Yes (Hospitalization, Other)
  Sender: FDA-Public Use
  Company Number: 2014-NL-003340

PATIENT
  Age: 33 Year
  Sex: Male

DRUGS (1)
  1. SODIUM OXYBATE [Suspect]
     Indication: PRODUCT USED FOR UNKNOWN INDICATION

REACTIONS (14)
  - Toxicity to various agents [None]
  - Suicide attempt [None]
  - Drug withdrawal syndrome [None]
  - Subdural haematoma [None]
  - Blood creatine phosphokinase increased [None]
  - Hyperkalaemia [None]
  - Drug dependence [None]
  - Amnesia [None]
  - Hallucination, auditory [None]
  - Delusion [None]
  - Agitation [None]
  - Anxiety [None]
  - Psychotic disorder [None]
  - Delirium [None]
